FAERS Safety Report 7250244-9 (Version None)
Quarter: 2011Q1

REPORT INFORMATION
  Report Type: 
  Country: None (occurrence: None)
  Receive Date: 20110128
  Receipt Date: 20110111
  Transmission Date: 20110831
  Serious: Yes (Other)
  Sender: FDA-Public Use
  Company Number: US-BAYER-200935886NA

PATIENT
  Sex: Female

DRUGS (14)
  1. BETASERON [Suspect]
     Indication: MULTIPLE SCLEROSIS
     Route: 058
     Dates: start: 19950301, end: 20041004
  2. ALEVE [Concomitant]
     Indication: PREMEDICATION
  3. BETASERON [Suspect]
     Route: 058
     Dates: start: 20080101, end: 20081125
  4. LEVOTHYROXINE SODIUM [Concomitant]
  5. FOSAMAX [Concomitant]
  6. PROZAC [Concomitant]
  7. BETASERON [Suspect]
     Dosage: 8 MIU, QOD
     Route: 058
     Dates: start: 20091209
  8. OSCAL [Concomitant]
  9. BETASERON [Suspect]
     Dosage: 2 MIU, QOD
     Route: 058
     Dates: start: 20080407
  10. BETASERON [Suspect]
     Route: 058
     Dates: start: 20091209
  11. OXYBUTYNIN [Concomitant]
  12. BETASERON [Suspect]
     Route: 058
     Dates: start: 20050201, end: 20060616
  13. BACLOFEN [Concomitant]
     Dosage: BACLOFEN PUMP
  14. AMANTADINE HCL [Concomitant]

REACTIONS (16)
  - RASH MACULAR [None]
  - ABNORMAL BEHAVIOUR [None]
  - MOBILITY DECREASED [None]
  - SINUSITIS [None]
  - MUSCULOSKELETAL PAIN [None]
  - COORDINATION ABNORMAL [None]
  - INJECTION SITE RASH [None]
  - DYSPHONIA [None]
  - MUSCULOSKELETAL STIFFNESS [None]
  - INJECTION SITE ERYTHEMA [None]
  - CYSTITIS [None]
  - DYSURIA [None]
  - MUSCULAR WEAKNESS [None]
  - COUGH [None]
  - MULTIPLE SCLEROSIS [None]
  - INJECTION SITE HAEMATOMA [None]
